FAERS Safety Report 4474428-8 (Version None)
Quarter: 2004Q4

REPORT INFORMATION
  Report Type: 
  Country: None (occurrence: None)
  Receive Date: 20041012
  Receipt Date: 20040928
  Transmission Date: 20050328
  Serious: Yes (Other)
  Sender: FDA-Public Use
  Company Number: 2004236056BR

PATIENT
  Age: 52 Year
  Sex: Female

DRUGS (2)
  1. PROVERA [Suspect]
     Indication: AMENORRHOEA
     Dosage: 10 MG, QD, ORAL
     Route: 048
     Dates: start: 20040919
  2. TENORETIC (CHLORTALIDONE) [Concomitant]

REACTIONS (1)
  - EPISTAXIS [None]
